FAERS Safety Report 11324951 (Version 6)
Quarter: 2018Q2

REPORT INFORMATION
  Report Type: Report from Study
  Country: US (occurrence: US)
  Receive Date: 20150730
  Receipt Date: 20180611
  Transmission Date: 20180711
  Serious: Yes (Other)
  Sender: FDA-Public Use
  Company Number: US-EISAI MEDICAL RESEARCH-EC-2014-000165

PATIENT
  Age: 83 Year
  Sex: Male
  Weight: 118.8 kg

DRUGS (21)
  1. ARMODAFINIL. [Concomitant]
     Active Substance: ARMODAFINIL
  2. PREGABALIN. [Concomitant]
     Active Substance: PREGABALIN
  3. TAMSULOSIN SR [Concomitant]
  4. IBUPROFEN. [Concomitant]
     Active Substance: IBUPROFEN
  5. DISULFIRAM. [Concomitant]
     Active Substance: DISULFIRAM
  6. FOLIC ACID. [Concomitant]
     Active Substance: FOLIC ACID
  7. ERGOCALCIFEROL. [Concomitant]
     Active Substance: ERGOCALCIFEROL
  8. ASPIRIN. [Concomitant]
     Active Substance: ASPIRIN
  9. METFORMIN SR [Concomitant]
  10. RANITIDINE. [Concomitant]
     Active Substance: RANITIDINE
  11. CYANOCOBALAMIN. [Concomitant]
     Active Substance: CYANOCOBALAMIN
  12. NITROGLYCERIN. [Concomitant]
     Active Substance: NITROGLYCERIN
  13. ZINC. [Concomitant]
     Active Substance: ZINC
  14. LISINOPRIL. [Concomitant]
     Active Substance: LISINOPRIL
  15. MELOXICAM. [Concomitant]
     Active Substance: MELOXICAM
  16. PLACEBO [Suspect]
     Active Substance: UNSPECIFIED INGREDIENT
     Indication: WEIGHT CONTROL
     Route: 048
     Dates: start: 20140905, end: 20140910
  17. ATORVASTATIN [Concomitant]
     Active Substance: ATORVASTATIN
  18. FEXOFENADINE [Concomitant]
     Active Substance: FEXOFENADINE\FEXOFENADINE HYDROCHLORIDE
  19. ISOSORBIDE DINITRATE. [Concomitant]
     Active Substance: ISOSORBIDE DINITRATE
  20. LIDOCAINE. [Concomitant]
     Active Substance: LIDOCAINE
  21. METOPROLOL XL [Concomitant]
     Active Substance: METOPROLOL SUCCINATE

REACTIONS (1)
  - Fatigue [Recovered/Resolved]

NARRATIVE: CASE EVENT DATE: 20140906
